FAERS Safety Report 20325821 (Version 1)
Quarter: 2022Q1

REPORT INFORMATION
  Report Type: Spontaneous
  Country: US (occurrence: US)
  Receive Date: 20220112
  Receipt Date: 20220112
  Transmission Date: 20220424
  Serious: No
  Sender: FDA-Public Use
  Company Number: US-JNJFOC-20220110189

PATIENT
  Age: 52 Year
  Sex: Male

DRUGS (1)
  1. STELARA [Suspect]
     Active Substance: USTEKINUMAB
     Indication: Crohn^s disease
     Route: 041
     Dates: start: 20211223, end: 20211223

REACTIONS (3)
  - Migraine [Unknown]
  - Disorientation [Unknown]
  - Photophobia [Unknown]

NARRATIVE: CASE EVENT DATE: 20211228
